FAERS Safety Report 5330895-9 (Version None)
Quarter: 2007Q2

REPORT INFORMATION
  Report Type: 
  Country: None (occurrence: None)
  Receive Date: 20070516
  Receipt Date: 20070502
  Transmission Date: 20071010
  Serious: Yes (Other)
  Sender: FDA-Public Use
  Company Number: 2007P1000223

PATIENT
  Sex: Male

DRUGS (1)
  1. RETEPLASE [Suspect]
     Indication: DRUG USE FOR UNKNOWN INDICATION
     Dosage: ; IV
     Route: 042
     Dates: start: 20070101

REACTIONS (1)
  - INJECTION SITE IRRITATION [None]
